FAERS Safety Report 26084343 (Version 1)
Quarter: 2025Q4

REPORT INFORMATION
  Report Type: Spontaneous
  Country: TR (occurrence: TR)
  Receive Date: 20251124
  Receipt Date: 20251124
  Transmission Date: 20260118
  Serious: Yes (Hospitalization)
  Sender: NOVO NORDISK
  Company Number: TR-NOVOPROD-1543947

PATIENT
  Age: 727 Month
  Sex: Male
  Weight: 130 kg

DRUGS (14)
  1. METFORMIN HYDROCHLORIDE [Concomitant]
     Active Substance: METFORMIN HYDROCHLORIDE
     Indication: Type 2 diabetes mellitus
     Dosage: 1000 MG, BID
  2. DAPAGLIFLOZIN [Concomitant]
     Active Substance: DAPAGLIFLOZIN
     Indication: Type 2 diabetes mellitus
     Dosage: 30 MG, QD (AT NOON)
  3. OZEMPIC [Suspect]
     Active Substance: SEMAGLUTIDE
     Indication: Weight control
  4. OZEMPIC [Suspect]
     Active Substance: SEMAGLUTIDE
     Indication: Type 2 diabetes mellitus
     Dosage: 0.25 MG, QW
  5. LINAGLIPTIN [Concomitant]
     Active Substance: LINAGLIPTIN
     Indication: Type 2 diabetes mellitus
     Dosage: 5 MG, QD ( IN EVENING)
  6. ALATAB [Concomitant]
     Indication: Type 2 diabetes mellitus
     Dosage: ONCE DAILY
  7. ASPIRIN [Concomitant]
     Active Substance: ASPIRIN
     Indication: Type 2 diabetes mellitus
     Dosage: ECOPIRIN 100 MG
  8. OZEMPIC [Suspect]
     Active Substance: SEMAGLUTIDE
     Indication: Type 2 diabetes mellitus
     Dosage: 0.5 MG, QW
  9. OZEMPIC [Suspect]
     Active Substance: SEMAGLUTIDE
     Indication: Weight control
  10. HYDROCHLOROTHIAZIDE\RAMIPRIL [Concomitant]
     Active Substance: HYDROCHLOROTHIAZIDE\RAMIPRIL
     Indication: Hypertension
     Dosage: 5 MG, QD
  11. SILODOSIN [Concomitant]
     Active Substance: SILODOSIN
     Dosage: 4 MG, QD
  12. MAGNESIUM [Concomitant]
     Active Substance: MAGNESIUM
     Indication: Mineral supplementation
     Dosage: UNK
  13. LYRICA [Concomitant]
     Active Substance: PREGABALIN
     Indication: Neuropathy peripheral
     Dosage: 150 MG
  14. DICLOFENAC [Concomitant]
     Active Substance: DICLOFENAC
     Dosage: 100 MG, QD (IN THE EVENING)

REACTIONS (5)
  - Muscle atrophy [Not Recovered/Not Resolved]
  - Condition aggravated [Not Recovered/Not Resolved]
  - Constipation [Unknown]
  - Impaired gastric emptying [Unknown]
  - Flatulence [Unknown]
